FAERS Safety Report 5595837-X (Version None)
Quarter: 2008Q1

REPORT INFORMATION
  Report Type: 
  Country: None (occurrence: None)
  Receive Date: 20080118
  Receipt Date: 20080110
  Transmission Date: 20080703
  Serious: Yes (Other)
  Sender: FDA-Public Use
  Company Number: US-ROCHE-522528

PATIENT
  Age: 39 Year
  Sex: Female

DRUGS (2)
  1. PEG-INTERFERON A-2A (RO 25-8310) [Suspect]
     Dosage: REPORTED AS PRE FILLED SYRINGE (PFS)
     Route: 065
     Dates: start: 20070713
  2. RIBAVIRIN [Suspect]
     Route: 065
     Dates: start: 20070713

REACTIONS (2)
  - OVARIAN CYST [None]
  - VIOLENCE-RELATED SYMPTOM [None]
